FAERS Safety Report 6340747-3 (Version None)
Quarter: 2009Q3

REPORT INFORMATION
  Report Type: 
  Country: None (occurrence: None)
  Receive Date: 20090904
  Receipt Date: 20090822
  Transmission Date: 20100115
  Serious: Yes (Other)
  Sender: FDA-Public Use
  Company Number: BR-AVENTIS-200919818GDDC

PATIENT
  Age: 30 Year
  Sex: Female
  Weight: 54 kg

DRUGS (1)
  1. ALLEGRA-D 12 HOUR [Suspect]
     Dosage: DOSE QUANTITY: 1
     Route: 048
     Dates: start: 20090820, end: 20090821

REACTIONS (1)
  - ANGINA PECTORIS [None]
